FAERS Safety Report 9559423 (Version 1)
Quarter: 2013Q3

REPORT INFORMATION
  Report Type: Spontaneous
  Country: US (occurrence: None)
  Receive Date: 20130913
  Receipt Date: 20130913
  Transmission Date: 20140515
  Serious: No
  Sender: FDA-Public Use
  Company Number: 1000044845

PATIENT
  Age: 66 Year
  Sex: Male

DRUGS (6)
  1. DALIRESP [Suspect]
     Indication: MULTIPLE ALLERGIES
     Route: 048
     Dates: start: 20130429
  2. CLARITIN (LORATADINE) (LORATADINE) [Concomitant]
  3. PREVACID (LANSOPRAZOLE) (LANSOPRAZOLE) [Concomitant]
  4. GLUCOPHAGE (METFORMIN HYDROCHLORIDE) (METFORMIN HYDROCHLORIDE) [Concomitant]
  5. TYLENOL (ACETAMINOPHEN) (ACETAMINOPHEN) [Concomitant]
  6. KLONOPIN [Concomitant]

REACTIONS (5)
  - Vomiting [None]
  - Diarrhoea [None]
  - Abdominal pain upper [None]
  - Dry mouth [None]
  - Off label use [None]
